FAERS Safety Report 8625761-7 (Version None)
Quarter: 2012Q3

REPORT INFORMATION
  Report Type: 
  Country: None (occurrence: None)
  Receive Date: 20120827
  Receipt Date: 20120815
  Transmission Date: 20120928
  Serious: No
  Sender: FDA-Public Use
  Company Number: RU-ABBOTT-12P-251-0968653-00

PATIENT
  Sex: Female

DRUGS (3)
  1. VIFERON [Concomitant]
     Indication: RESPIRATORY DISORDER
     Dates: start: 20120401, end: 20120501
  2. SINUPRET [Concomitant]
     Indication: RESPIRATORY DISORDER
     Dates: start: 20120401, end: 20120501
  3. KLACID SR [Suspect]
     Indication: SINUSITIS
     Dosage: 2 TABS X 500MG/TAB DAY
     Dates: start: 20120401, end: 20120401

REACTIONS (2)
  - RASH [None]
  - ABNORMAL FAECES [None]
